FAERS Safety Report 9918838 (Version 1)
Quarter: 2014Q1

REPORT INFORMATION
  Report Type: Spontaneous
  Country: US (occurrence: US)
  Receive Date: 20140224
  Receipt Date: 20140224
  Transmission Date: 20141002
  Serious: Yes (Other)
  Sender: FDA-Public Use
  Company Number: US-ORION CORPORATION ORION PHARMA-ENTC2014-0069

PATIENT
  Sex: Male

DRUGS (2)
  1. STALEVO [Suspect]
     Dosage: STRENGTH: 150
     Route: 065
  2. CARBIDOPA, LEVODOPA AND ENTACAPONE [Suspect]
     Route: 065

REACTIONS (4)
  - Product quality issue [Unknown]
  - Product substitution issue [Unknown]
  - Tremor [Unknown]
  - Tendon rupture [Unknown]
